FAERS Safety Report 21504729 (Version 1)
Quarter: 2022Q4

REPORT INFORMATION
  Report Type: Spontaneous
  Country: PL (occurrence: PL)
  Receive Date: 20221025
  Receipt Date: 20221025
  Transmission Date: 20230112
  Serious: Yes (Other)
  Sender: FDA-Public Use
  Company Number: None

PATIENT
  Age: 28 Year
  Weight: 57 kg

DRUGS (1)
  1. DEXILANT [Suspect]
     Active Substance: DEXLANSOPRAZOLE
     Indication: Erosive oesophagitis
     Dosage: 60 MILLIGRAM, QD
     Route: 048
     Dates: start: 20210515

REACTIONS (18)
  - Eating disorder [Not Recovered/Not Resolved]
  - Initial insomnia [Not Recovered/Not Resolved]
  - Hot flush [Not Recovered/Not Resolved]
  - Somnolence [Not Recovered/Not Resolved]
  - Asthenia [Not Recovered/Not Resolved]
  - Chest discomfort [Not Recovered/Not Resolved]
  - Dyspepsia [Not Recovered/Not Resolved]
  - Cough [Not Recovered/Not Resolved]
  - Hyperhidrosis [Not Recovered/Not Resolved]
  - Dyspnoea [Not Recovered/Not Resolved]
  - Nausea [Not Recovered/Not Resolved]
  - Pain [Not Recovered/Not Resolved]
  - Feeling abnormal [Not Recovered/Not Resolved]
  - Heart rate increased [Not Recovered/Not Resolved]
  - Palpitations [Not Recovered/Not Resolved]
  - Throat irritation [Not Recovered/Not Resolved]
  - Dizziness [Not Recovered/Not Resolved]
  - Eye irritation [Not Recovered/Not Resolved]

NARRATIVE: CASE EVENT DATE: 20210516
